FAERS Safety Report 7514787-2 (Version None)
Quarter: 2011Q2

REPORT INFORMATION
  Report Type: 
  Country: None (occurrence: None)
  Receive Date: 20110422
  Receipt Date: 20100602
  Transmission Date: 20111010
  Serious: Yes (Life-Threatening, Hospitalization)
  Sender: FDA-Public Use
  Company Number: WAES 1006USA00641

PATIENT
  Age: 16 Year
  Sex: Male
  Weight: 70.7611 kg

DRUGS (5)
  1. SINGULAIR [Suspect]
     Indication: RHINITIS
     Dosage: 10 MG/DAILY/PO
     Route: 048
     Dates: start: 20080101, end: 20100501
  2. SINGULAIR [Suspect]
     Indication: ASTHMA
     Dosage: 10 MG/DAILY/PO
     Route: 048
     Dates: start: 20080101, end: 20100501
  3. ALBUTEROL SULFATE AUTOHALER [Concomitant]
  4. ASMANEX TWISTHALER [Concomitant]
  5. INSULIN [Concomitant]

REACTIONS (1)
  - PANCREATITIS ACUTE [None]
